FAERS Safety Report 10012484 (Version 2)
Quarter: 2014Q2

REPORT INFORMATION
  Report Type: Spontaneous
  Country: US (occurrence: US)
  Receive Date: 20140312
  Receipt Date: 20140403
  Transmission Date: 20141212
  Serious: No
  Sender: FDA-Public Use
  Company Number: US-PFIZER INC-2014069959

PATIENT
  Age: 69 Year
  Sex: Male

DRUGS (3)
  1. ZOLOFT [Suspect]
     Dosage: UNK
  2. ZOLOFT [Suspect]
     Dosage: UNK
     Dates: start: 2005
  3. ZOLOFT [Suspect]
     Dosage: 20 MG, 1X/DAY (1 Q AM)

REACTIONS (1)
  - Drug hypersensitivity [Unknown]
